FAERS Safety Report 7271087-6 (Version None)
Quarter: 2011Q1

REPORT INFORMATION
  Report Type: 
  Country: None (occurrence: None)
  Receive Date: 20110202
  Receipt Date: 20110124
  Transmission Date: 20110831
  Serious: Yes (Other)
  Sender: FDA-Public Use
  Company Number: US-ASTRAZENECA-2011SE03890

PATIENT
  Age: 49 Year
  Sex: Female
  Weight: 52.2 kg

DRUGS (11)
  1. CHANTIX [Suspect]
     Indication: SMOKING CESSATION THERAPY
  2. EFFEXOR [Concomitant]
     Indication: DEPRESSION
  3. TRAZODONE HCL [Concomitant]
     Indication: SLEEP DISORDER
     Dates: start: 20100101
  4. SIMVASTATIN [Concomitant]
     Indication: HYPERCHOLESTEROLAEMIA
     Dates: start: 20100101
  5. CHANTIX [Suspect]
  6. CHANTIX [Suspect]
  7. SERTRALINE HYDROCHLORIDE [Concomitant]
     Indication: DEPRESSION
  8. VITAMIN D [Concomitant]
     Indication: VITAMIN D DEFICIENCY
  9. NEXIUM [Suspect]
     Route: 048
     Dates: end: 20110108
  10. IBUPROFEN [Concomitant]
     Indication: PAIN
     Dates: start: 20110108
  11. FENOFIBRATE [Concomitant]

REACTIONS (4)
  - HEPATIC CIRRHOSIS [None]
  - EROSIVE OESOPHAGITIS [None]
  - RENAL DISORDER [None]
  - NIGHTMARE [None]
